FAERS Safety Report 10277514 (Version 3)
Quarter: 2014Q3

REPORT INFORMATION
  Report Type: Spontaneous
  Country: US (occurrence: US)
  Receive Date: 20140703
  Receipt Date: 20140722
  Transmission Date: 20150326
  Serious: Yes (Disabling)
  Sender: FDA-Public Use
  Company Number: US-PFIZER INC-2014179511

PATIENT
  Age: 59 Year
  Sex: Male

DRUGS (3)
  1. VFEND [Suspect]
     Active Substance: VORICONAZOLE
     Dosage: 200 MG, UNK
  2. VFEND [Suspect]
     Active Substance: VORICONAZOLE
     Indication: PNEUMONIA FUNGAL
     Dosage: 200MG TAB, 1.5 TABS 2X/DAY 60 DAY SUPPLY
     Route: 048
     Dates: start: 201406
  3. VFEND [Suspect]
     Active Substance: VORICONAZOLE
     Dosage: 50 MG, UNK

REACTIONS (2)
  - Lung disorder [Unknown]
  - Cardiac disorder [Unknown]
